FAERS Safety Report 18146655 (Version 1)
Quarter: 2020Q3

REPORT INFORMATION
  Report Type: Spontaneous
  Country: US (occurrence: US)
  Receive Date: 20200813
  Receipt Date: 20200813
  Transmission Date: 20201103
  Serious: Yes (Other)
  Sender: FDA-Public Use
  Company Number: US-TEVA-2020-US-1813217

PATIENT
  Sex: Male

DRUGS (8)
  1. HYDROCODONE [Suspect]
     Active Substance: HYDROCODONE
     Route: 065
  2. DILAUDID [Suspect]
     Active Substance: HYDROMORPHONE HYDROCHLORIDE
     Route: 065
  3. FENTANYL. [Suspect]
     Active Substance: FENTANYL
     Route: 065
  4. MS CONTIN [Suspect]
     Active Substance: MORPHINE SULFATE
     Route: 065
  5. NORCO [Suspect]
     Active Substance: ACETAMINOPHEN\HYDROCODONE BITARTRATE
     Route: 065
  6. BUTRANS [Suspect]
     Active Substance: BUPRENORPHINE
     Route: 065
  7. PERCOCET [Suspect]
     Active Substance: ACETAMINOPHEN\OXYCODONE HYDROCHLORIDE
     Route: 065
  8. MORPHINE [Suspect]
     Active Substance: MORPHINE
     Route: 065

REACTIONS (10)
  - Illness [Unknown]
  - Tremor [Unknown]
  - Divorced [Unknown]
  - Asthenia [Unknown]
  - Loss of personal independence in daily activities [Unknown]
  - Abdominal discomfort [Unknown]
  - Impaired driving ability [Unknown]
  - Loss of employment [Unknown]
  - Drug dependence [Unknown]
  - Withdrawal syndrome [Unknown]
